FAERS Safety Report 25360838 (Version 1)
Quarter: 2025Q2

REPORT INFORMATION
  Report Type: Spontaneous
  Country: CA (occurrence: CA)
  Receive Date: 20250527
  Receipt Date: 20250527
  Transmission Date: 20250717
  Serious: Yes (Hospitalization)
  Sender: AMGEN
  Company Number: CA-AMGEN-CANSP2025098217

PATIENT
  Age: 58 Year
  Sex: Female

DRUGS (6)
  1. RITUXIMAB [Suspect]
     Active Substance: RITUXIMAB
     Indication: Cardiomyopathy
     Route: 065
  2. BOSENTAN [Concomitant]
     Active Substance: BOSENTAN
  3. TADALAFIL [Concomitant]
     Active Substance: TADALAFIL
  4. NIFEDIPINE [Concomitant]
     Active Substance: NIFEDIPINE
     Route: 061
  5. BISOPROLOL [Concomitant]
     Active Substance: BISOPROLOL
  6. MYCOPHENOLIC ACID [Concomitant]
     Active Substance: MYCOPHENOLIC ACID

REACTIONS (2)
  - Ventricular tachycardia [Unknown]
  - Off label use [Unknown]
